FAERS Safety Report 20519796 (Version 1)
Quarter: 2022Q1

REPORT INFORMATION
  Report Type: Spontaneous
  Country: JP (occurrence: JP)
  Receive Date: 20220225
  Receipt Date: 20220225
  Transmission Date: 20220423
  Serious: Yes (Other)
  Sender: FDA-Public Use
  Company Number: JP-PFIZER INC-202200284593

PATIENT
  Sex: Female

DRUGS (3)
  1. CELECOXIB [Suspect]
     Active Substance: CELECOXIB
     Indication: Pain
     Dosage: 1 DF, 2X/DAY(IN THE MORNING AND IN THE EVENING)
     Route: 048
  2. CELECOXIB [Suspect]
     Active Substance: CELECOXIB
     Dosage: 0.5 DF, 2X/DAY
     Route: 048
     Dates: start: 1999
  3. REBAMIPIDE [Concomitant]
     Active Substance: REBAMIPIDE
     Indication: Prophylaxis against gastrointestinal ulcer

REACTIONS (7)
  - Sinoatrial block [Unknown]
  - Hysterectomy [Unknown]
  - Pain [Unknown]
  - Hypoaesthesia [Unknown]
  - Weight decreased [Unknown]
  - Intentional underdose [Unknown]
  - Laziness [Unknown]
